FAERS Safety Report 24734212 (Version 2)
Quarter: 2025Q2

REPORT INFORMATION
  Report Type: Spontaneous
  Country: DE (occurrence: DE)
  Receive Date: 20241214
  Receipt Date: 20250403
  Transmission Date: 20250717
  Serious: Yes (Other)
  Sender: ALKEM
  Company Number: DE-ALKEM LABORATORIES LIMITED-DE-ALKEM-2024-03907

PATIENT
  Age: 4 Year

DRUGS (2)
  1. MYCOPHENOLATE MOFETIL [Suspect]
     Active Substance: MYCOPHENOLATE MOFETIL
     Indication: Morphoea
     Dosage: 1200 MILLIGRAM, QD (EVERY 1 DAY)
     Route: 065
  2. METHOTREXATE [Suspect]
     Active Substance: METHOTREXATE
     Indication: Morphoea
     Dosage: 15 MILLIGRAM/SQ. METER, ONCE WEEKLY
     Route: 065

REACTIONS (4)
  - Morphoea [Unknown]
  - Condition aggravated [Unknown]
  - Product use in unapproved indication [Unknown]
  - Therapy non-responder [Unknown]
